FAERS Safety Report 17028313 (Version 1)
Quarter: 2019Q4

REPORT INFORMATION
  Report Type: Spontaneous
  Country: US (occurrence: US)
  Receive Date: 20191010
  Receipt Date: 20191010
  Transmission Date: 20200122
  Serious: No
  Sender: FDA-Public Use
  Company Number: None

PATIENT
  Age: 54 Year
  Sex: Female

DRUGS (2)
  1. TYKERB [Suspect]
     Active Substance: LAPATINIB DITOSYLATE
     Indication: NEOPLASM MALIGNANT
     Route: 048
     Dates: start: 201905
  2. CAPECITABINE. [Concomitant]
     Active Substance: CAPECITABINE
     Dates: start: 201905

REACTIONS (7)
  - Tremor [None]
  - Urinary tract infection [None]
  - Fatigue [None]
  - Asthenia [None]
  - Gait disturbance [None]
  - Disturbance in attention [None]
  - Urine odour abnormal [None]

NARRATIVE: CASE EVENT DATE: 20191010
